FAERS Safety Report 8016261-6 (Version None)
Quarter: 2011Q4

REPORT INFORMATION
  Report Type: 
  Country: None (occurrence: None)
  Receive Date: 20111228
  Receipt Date: 20111228
  Transmission Date: 20120403
  Serious: Yes (Hospitalization)
  Sender: FDA-Public Use
  Company Number: None

PATIENT
  Sex: Male
  Weight: 101.6057 kg

DRUGS (10)
  1. XANAX [Concomitant]
  2. NEXIUM [Concomitant]
  3. NEURONTIN [Concomitant]
  4. PERCOCET [Concomitant]
  5. TENORMIN [Concomitant]
  6. FLUOROURACIL [Suspect]
     Indication: OESOPHAGEAL CARCINOMA
     Dosage: 876 IVP 5256 CI IV Q 14 DAYS
     Route: 042
     Dates: start: 20111220
  7. LIDOCAINE PATEN [Concomitant]
  8. OXALIPLATIN [Suspect]
     Indication: OESOPHAGEAL CARCINOMA
     Dosage: 186 MG IV Q 14 DAYS
     Route: 042
     Dates: start: 20111220
  9. ROXICET [Concomitant]
  10. LISINOPRIL [Concomitant]

REACTIONS (5)
  - NAUSEA [None]
  - VOMITING [None]
  - SCAR [None]
  - PNEUMONIA [None]
  - ABDOMINAL PAIN LOWER [None]
